FAERS Safety Report 6066173-2 (Version None)
Quarter: 2009Q1

REPORT INFORMATION
  Report Type: 
  Country: None (occurrence: None)
  Receive Date: 20090205
  Receipt Date: 20090127
  Transmission Date: 20090719
  Serious: Yes (Other)
  Sender: FDA-Public Use
  Company Number: PHHY2009BR03007

PATIENT
  Sex: Female
  Weight: 69 kg

DRUGS (6)
  1. ELIDEL [Suspect]
     Indication: VITILIGO
     Dosage: 15 G, BID
     Route: 061
     Dates: start: 20020101
  2. ELIDEL [Suspect]
     Dosage: 30 G
  3. DIOVAN [Concomitant]
  4. RISEDRONATE SODIUM [Concomitant]
     Dosage: 35 MG, QW
  5. CALTRATE + D [Concomitant]
     Indication: OSTEOPOROSIS
     Dosage: 1 TABLET/DAY
  6. HOMEOPATHIC PREPARATIONS [Concomitant]

REACTIONS (5)
  - ABDOMINAL PAIN UPPER [None]
  - ADENOMYOSIS [None]
  - GENITAL DISORDER FEMALE [None]
  - PRURITUS [None]
  - SURGERY [None]
